FAERS Safety Report 5107673-9 (Version None)
Quarter: 2006Q3

REPORT INFORMATION
  Report Type: 
  Country: None (occurrence: None)
  Receive Date: 20060919
  Receipt Date: 20060906
  Transmission Date: 20061208
  Serious: Yes (Other)
  Sender: FDA-Public Use
  Company Number: PHHO2006NZ14944

PATIENT
  Sex: Female

DRUGS (1)
  1. CLOZARIL [Suspect]
     Indication: SCHIZOPHRENIA
     Dates: start: 20060828, end: 20060901

REACTIONS (2)
  - BLOOD PRESSURE DECREASED [None]
  - TRANSIENT ISCHAEMIC ATTACK [None]
